FAERS Safety Report 4897773-0 (Version None)
Quarter: 2006Q1

REPORT INFORMATION
  Report Type: 
  Country: None (occurrence: None)
  Receive Date: 20060201
  Receipt Date: 20060120
  Transmission Date: 20060701
  Serious: Yes (Death, Hospitalization)
  Sender: FDA-Public Use
  Company Number: FR-JNJFOC-20060105617

PATIENT
  Age: 77 Year
  Sex: Male

DRUGS (10)
  1. IXPRIM [Suspect]
     Indication: DRUG USE FOR UNKNOWN INDICATION
     Route: 048
  2. CORDARONE [Suspect]
     Indication: DRUG USE FOR UNKNOWN INDICATION
     Route: 048
  3. ZYLORIC [Suspect]
     Indication: DRUG USE FOR UNKNOWN INDICATION
     Route: 048
  4. NEURONTIN [Suspect]
     Indication: DRUG USE FOR UNKNOWN INDICATION
     Route: 048
  5. VASTAREL [Concomitant]
     Route: 048
  6. STILNOX [Concomitant]
     Route: 048
  7. NIFEDIPINE [Concomitant]
     Route: 048
  8. BEFIZAL [Concomitant]
     Route: 048
  9. PREVISCAN [Concomitant]
     Route: 048
  10. LOVENOX [Concomitant]
     Route: 065

REACTIONS (6)
  - CEREBROVASCULAR ACCIDENT [None]
  - DERMATITIS EXFOLIATIVE [None]
  - LOW DENSITY LIPOPROTEIN INCREASED [None]
  - PRURITUS [None]
  - RENAL FAILURE [None]
  - TOXIC SKIN ERUPTION [None]
